FAERS Safety Report 4290992-6 (Version None)
Quarter: 2004Q1

REPORT INFORMATION
  Report Type: 
  Country: None (occurrence: None)
  Receive Date: 20040211
  Receipt Date: 20031023
  Transmission Date: 20041129
  Serious: No
  Sender: FDA-Public Use
  Company Number: US-GLAXOSMITHKLINE-A0431440A

PATIENT
  Age: 33 Year
  Sex: Female

DRUGS (2)
  1. PAXIL [Suspect]
     Dosage: 20MG VARIABLE DOSE
     Route: 048
     Dates: end: 20030901
  2. AVIANE-21 [Concomitant]

REACTIONS (4)
  - DIZZINESS [None]
  - DRUG WITHDRAWAL SYNDROME [None]
  - HEADACHE [None]
  - VOMITING [None]
